FAERS Safety Report 15939757 (Version 3)
Quarter: 2019Q3

REPORT INFORMATION
  Report Type: Spontaneous
  Country: US (occurrence: US)
  Receive Date: 20190208
  Receipt Date: 20190925
  Transmission Date: 20191004
  Serious: Yes (Other)
  Sender: FDA-Public Use
  Company Number: US-ASTRAZENECA-2018SF13524

PATIENT
  Age: 51 Year
  Sex: Female
  Weight: 91.2 kg

DRUGS (25)
  1. LISINOPRIL. [Concomitant]
     Active Substance: LISINOPRIL
  2. HYDROCODONE BITARTRATE AND ACETAMINOPHEN [Concomitant]
     Active Substance: ACETAMINOPHEN\HYDROCODONE BITARTRATE
  3. METFORMIN [Concomitant]
     Active Substance: METFORMIN HYDROCHLORIDE
  4. MONTELUKAST [Concomitant]
     Active Substance: MONTELUKAST SODIUM
  5. PRILOSEC OTC [Suspect]
     Active Substance: OMEPRAZOLE MAGNESIUM
     Indication: GASTROOESOPHAGEAL REFLUX DISEASE
     Route: 048
     Dates: start: 200611, end: 201702
  6. PREVACID [Suspect]
     Active Substance: LANSOPRAZOLE
     Route: 065
     Dates: start: 200611, end: 201702
  7. LAMICTAL [Concomitant]
     Active Substance: LAMOTRIGINE
  8. NEXIUM [Suspect]
     Active Substance: ESOMEPRAZOLE MAGNESIUM
     Indication: GASTROOESOPHAGEAL REFLUX DISEASE
     Route: 048
     Dates: start: 200611, end: 201702
  9. NEXIUM [Suspect]
     Active Substance: ESOMEPRAZOLE MAGNESIUM
     Indication: GASTROOESOPHAGEAL REFLUX DISEASE
     Route: 048
     Dates: start: 20080923
  10. DEXILANT [Suspect]
     Active Substance: DEXLANSOPRAZOLE
     Indication: GASTROOESOPHAGEAL REFLUX DISEASE
     Route: 065
     Dates: start: 20150423, end: 20170226
  11. FUROSEMIDE. [Concomitant]
     Active Substance: FUROSEMIDE
  12. TRAMADOL. [Concomitant]
     Active Substance: TRAMADOL
  13. CYCLOBENZAPRINE. [Concomitant]
     Active Substance: CYCLOBENZAPRINE
  14. NEXIUM [Suspect]
     Active Substance: ESOMEPRAZOLE MAGNESIUM
     Indication: GASTROOESOPHAGEAL REFLUX DISEASE
     Route: 048
     Dates: start: 20061103, end: 20150224
  15. MELOXICAM. [Concomitant]
     Active Substance: MELOXICAM
  16. DEXILANT [Suspect]
     Active Substance: DEXLANSOPRAZOLE
     Indication: GASTROOESOPHAGEAL REFLUX DISEASE
     Route: 048
     Dates: start: 20150423
  17. GABAPENTIN. [Concomitant]
     Active Substance: GABAPENTIN
  18. NAPROXEN. [Concomitant]
     Active Substance: NAPROXEN
  19. CLINDAMYCIN. [Concomitant]
     Active Substance: CLINDAMYCIN
  20. NEXIUM 24HR [Suspect]
     Active Substance: ESOMEPRAZOLE MAGNESIUM
     Indication: GASTROOESOPHAGEAL REFLUX DISEASE
     Route: 048
     Dates: start: 200611, end: 201702
  21. DEXILANT [Suspect]
     Active Substance: DEXLANSOPRAZOLE
     Indication: GASTROOESOPHAGEAL REFLUX DISEASE
     Route: 065
     Dates: start: 200611, end: 201702
  22. CLONAZEPAM. [Concomitant]
     Active Substance: CLONAZEPAM
  23. TRICOR [Concomitant]
     Active Substance: FENOFIBRATE
  24. NOVOLOG [Concomitant]
     Active Substance: INSULIN ASPART
  25. CRESTOR [Concomitant]
     Active Substance: ROSUVASTATIN CALCIUM

REACTIONS (3)
  - Chronic kidney disease [Not Recovered/Not Resolved]
  - Renal injury [Unknown]
  - Acute kidney injury [Not Recovered/Not Resolved]

NARRATIVE: CASE EVENT DATE: 2012
